FAERS Safety Report 17970387 (Version 1)
Quarter: 2020Q3

REPORT INFORMATION
  Report Type: Spontaneous
  Country: JP (occurrence: JP)
  Receive Date: 20200701
  Receipt Date: 20200701
  Transmission Date: 20201103
  Serious: Yes (Disabling, Other)
  Sender: FDA-Public Use
  Company Number: JP-BAYER-2020-130633

PATIENT
  Age: 81 Year
  Sex: Male
  Weight: 58 kg

DRUGS (7)
  1. XOFIGO [Suspect]
     Active Substance: RADIUM RA-223 DICHLORIDE
     Indication: HORMONE-REFRACTORY PROSTATE CANCER
     Dosage: 55KBG/KG ONCE A DAY
     Dates: start: 20200319, end: 20200319
  2. ENSURE [NUTRIENTS NOS] [Concomitant]
     Dosage: DAILY DOSE 1 DF
     Route: 048
  3. DEXAMETHASONE. [Concomitant]
     Active Substance: DEXAMETHASONE
     Dosage: DAILY DOSE 0.5 MG
     Route: 048
     Dates: start: 20200213, end: 20200312
  4. XOFIGO [Suspect]
     Active Substance: RADIUM RA-223 DICHLORIDE
     Indication: HORMONE-REFRACTORY PROSTATE CANCER
     Dosage: 55KBG/KG ONCE A DAY
     Dates: start: 20200123, end: 20200123
  5. XOFIGO [Suspect]
     Active Substance: RADIUM RA-223 DICHLORIDE
     Indication: METASTASES TO BONE
     Dosage: 55KBG/KG ONCE A DAY
     Dates: start: 20200220, end: 20200220
  6. FAMOTIDINE OD ME [Concomitant]
     Dosage: DAILY DOSE 20 MG
     Route: 048
     Dates: start: 20200213, end: 20200312
  7. XOFIGO [Suspect]
     Active Substance: RADIUM RA-223 DICHLORIDE
     Indication: HORMONE-REFRACTORY PROSTATE CANCER
     Dosage: 55KBG/KG ONCE A DAY
     Dates: start: 20200416, end: 20200416

REACTIONS (2)
  - Metastases to liver [None]
  - Hormone-refractory prostate cancer [Not Recovered/Not Resolved]

NARRATIVE: CASE EVENT DATE: 20200507
